FAERS Safety Report 8537347-3 (Version None)
Quarter: 2012Q3

REPORT INFORMATION
  Report Type: 
  Country: None (occurrence: None)
  Receive Date: 20120725
  Receipt Date: 20120716
  Transmission Date: 20120928
  Serious: Yes (Hospitalization)
  Sender: FDA-Public Use
  Company Number: FR-PFIZER INC-2012116879

PATIENT
  Age: 65 Year
  Sex: Male

DRUGS (10)
  1. SODIUM CHLORURE VIAFLO [Suspect]
     Dosage: 1000 MG, UNK
     Route: 042
     Dates: start: 20120408, end: 20120411
  2. ASPEGIC 1000 [Concomitant]
     Dosage: 250 MG, UNK
     Route: 048
     Dates: start: 20120411, end: 20120415
  3. LEXOMIL [Concomitant]
     Dosage: UNK
  4. NOVOLOG MIX 70/30 [Concomitant]
     Dosage: UNK
  5. NICOTINE [Concomitant]
     Dosage: UNK
     Route: 062
  6. LOVENOX [Concomitant]
     Dosage: 40MG, UNK
     Route: 058
     Dates: start: 20120408, end: 20120414
  7. ATORVASTATIN [Concomitant]
     Dosage: 40 MG, DAILY
     Dates: start: 20120411
  8. PANTOPRAZOLE [Suspect]
     Dosage: 40 MG, DAILY
     Route: 042
     Dates: start: 20120408, end: 20120410
  9. ASPEGIC 1000 [Suspect]
     Dosage: 250 MG (500 MG/5 ML), DAILY
     Route: 042
     Dates: start: 20120408, end: 20120410
  10. INSUMAN [Suspect]
     Dosage: UNK
     Route: 042
     Dates: start: 20120416, end: 20120418

REACTIONS (2)
  - THROMBOPHLEBITIS SUPERFICIAL [None]
  - INJECTION SITE THROMBOSIS [None]
